FAERS Safety Report 20935455 (Version 5)
Quarter: 2022Q3

REPORT INFORMATION
  Report Type: Spontaneous
  Country: FR (occurrence: FR)
  Receive Date: 20220609
  Receipt Date: 20220728
  Transmission Date: 20221027
  Serious: Yes (Hospitalization, Other)
  Sender: FDA-Public Use
  Company Number: FR-AFSSAPS-TS20213216

PATIENT
  Age: 83 Year
  Sex: Female

DRUGS (33)
  1. BROMAZEPAM [Suspect]
     Active Substance: BROMAZEPAM
     Indication: Anxiety
     Dosage: 6 MILLIGRAM, ONCE A DAY
     Route: 048
  2. CANDESARTAN [Suspect]
     Active Substance: CANDESARTAN
     Indication: Hypertension
     Dosage: 2 MILLIGRAM, ONCE A DAY
     Route: 048
  3. IVABRADINE [Suspect]
     Active Substance: IVABRADINE
     Indication: Angina pectoris
     Dosage: 10 MILLIGRAM, ONCE A DAY
     Route: 048
  4. ROSUVASTATIN [Suspect]
     Active Substance: ROSUVASTATIN
     Indication: Hypercholesterolaemia
     Dosage: 10 MILLIGRAM, ONCE A DAY
     Route: 048
  5. LEVOTHYROXINE [Suspect]
     Active Substance: LEVOTHYROXINE
     Indication: Hypothyroidism
     Dosage: 75 MICROGRAM, ONCE A DAY
     Route: 048
  6. PLAVIX [Suspect]
     Active Substance: CLOPIDOGREL BISULFATE
     Indication: Myocardial infarction
     Dosage: 75 MILLIGRAM, ONCE A DAY
     Route: 048
  7. VIDAZA [Suspect]
     Active Substance: AZACITIDINE
     Indication: Acute leukaemia
     Dosage: UNK, EVERY MONTH
     Route: 059
     Dates: start: 20200825, end: 20210511
  8. VIDAZA [Suspect]
     Active Substance: AZACITIDINE
     Dosage: UNK, (7TH COURSE)
     Route: 065
     Dates: start: 20210210, end: 20210216
  9. VIDAZA [Suspect]
     Active Substance: AZACITIDINE
     Dosage: UNK, (10TH COURSE)
     Route: 065
     Dates: start: 20210505, end: 20210511
  10. VIDAZA [Suspect]
     Active Substance: AZACITIDINE
     Dosage: UNK, (6TH COURSE)
     Route: 065
     Dates: start: 20210113, end: 20210119
  11. VIDAZA [Suspect]
     Active Substance: AZACITIDINE
     Dosage: UNK, (3RD COURSE)
     Route: 065
     Dates: start: 20201021, end: 20201027
  12. VIDAZA [Suspect]
     Active Substance: AZACITIDINE
     Dosage: UNK, (2ND COURSE)
     Route: 065
     Dates: start: 20200923, end: 20200929
  13. VIDAZA [Suspect]
     Active Substance: AZACITIDINE
     Dosage: 130 MG (DAILY) (75 MG/M2/DAY)
     Route: 058
     Dates: start: 20200825, end: 20200831
  14. VIDAZA [Suspect]
     Active Substance: AZACITIDINE
     Dosage: UNK, (8TH COURSE)
     Route: 065
     Dates: start: 20210310, end: 20210316
  15. VIDAZA [Suspect]
     Active Substance: AZACITIDINE
     Dosage: UNK, (5TH COURSE)
     Route: 065
     Dates: start: 20201216, end: 20201223
  16. VIDAZA [Suspect]
     Active Substance: AZACITIDINE
     Dosage: UNK, ( 9 TH COURSE)
     Route: 065
     Dates: start: 20210408, end: 20210413
  17. VIDAZA [Suspect]
     Active Substance: AZACITIDINE
     Dosage: UNK, (4TH COURSE)
     Route: 065
     Dates: start: 20201118, end: 20201124
  18. VIDAZA [Suspect]
     Active Substance: AZACITIDINE
     Dosage: UNK, EVERY MONTH
     Route: 058
     Dates: start: 20200825, end: 20210511
  19. ONDANSETRON [Suspect]
     Active Substance: ONDANSETRON
     Indication: Antiemetic supportive care
     Dosage: UNK, EVERY MONTH
     Route: 042
     Dates: start: 20200825, end: 20210618
  20. ONDANSETRON [Suspect]
     Active Substance: ONDANSETRON
     Dosage: 16 MILLIGRAM, ONCE A DAY (16 MG, QD (8 MG, BID)
     Route: 065
     Dates: start: 20201108, end: 20201124
  21. ONDANSETRON [Suspect]
     Active Substance: ONDANSETRON
     Dosage: 16 MILLIGRAM, ONCE A DAY (16 MG, QD (8 MG, BID)
     Route: 065
     Dates: start: 20201216, end: 20201223
  22. ONDANSETRON [Suspect]
     Active Substance: ONDANSETRON
     Dosage: 16 MILLIGRAM, ONCE A DAY (16 MG, QD (8 MG, BID)
     Route: 065
     Dates: start: 20210113, end: 20210119
  23. ONDANSETRON [Suspect]
     Active Substance: ONDANSETRON
     Dosage: 16 MILLIGRAM, ONCE A DAY (16 MG, QD (8 MG, BID)
     Route: 065
     Dates: start: 20201021, end: 20201027
  24. ONDANSETRON [Suspect]
     Active Substance: ONDANSETRON
     Dosage: 16 MILLIGRAM, ONCE A DAY (16 MG, QD (8 MG, BID)
     Route: 065
     Dates: start: 20210310, end: 20210316
  25. ONDANSETRON [Suspect]
     Active Substance: ONDANSETRON
     Dosage: 16 MILLIGRAM, ONCE A DAY (16 MG, QD (8 MG, BID)
     Route: 065
     Dates: start: 20210408, end: 20210413
  26. ONDANSETRON [Suspect]
     Active Substance: ONDANSETRON
     Dosage: 16 MILLIGRAM, ONCE A DAY (16 MG, QD (8 MG, BID)
     Route: 065
     Dates: start: 20210505, end: 20210511
  27. ONDANSETRON [Suspect]
     Active Substance: ONDANSETRON
     Dosage: 16 MILLIGRAM, ONCE A DAY (16 MG, QD (8 MG, BID)
     Route: 065
     Dates: start: 20210210, end: 20210216
  28. ONDANSETRON [Suspect]
     Active Substance: ONDANSETRON
     Dosage: 8 MILLIGRAM (QD IN THE MORNING)
     Route: 065
     Dates: start: 20210618, end: 20210618
  29. ONDANSETRON [Suspect]
     Active Substance: ONDANSETRON
     Dosage: 16 MILLIGRAM QD (8 MG BID)
     Route: 065
     Dates: start: 20210617, end: 20210617
  30. CYTARABINE [Concomitant]
     Active Substance: CYTARABINE
     Indication: Product used for unknown indication
     Dosage: 50 MILLIGRAM (MORNING AND EVENING FROM 5 DAYS)
     Route: 058
  31. PANTOPRAZOLE [Concomitant]
     Active Substance: PANTOPRAZOLE
     Indication: Gastrooesophageal reflux disease
     Dosage: 40 MILLIGRAM, ONCE A DAY
     Route: 065
  32. XYLOCAINE [Concomitant]
     Active Substance: LIDOCAINE HYDROCHLORIDE
     Indication: Product used for unknown indication
     Dosage: 1 MILLILITER (1 ML, (10 MG/ML)
     Route: 065
  33. VALACYCLOVIR HYDROCHLORIDE [Concomitant]
     Active Substance: VALACYCLOVIR HYDROCHLORIDE
     Indication: Antiviral prophylaxis
     Dosage: 1 GRAM, ONCE A DAY
     Route: 065
     Dates: start: 20200812

REACTIONS (5)
  - Angioedema [Recovered/Resolved]
  - Bronchospasm [Recovered/Resolved]
  - Urticaria [Not Recovered/Not Resolved]
  - Rash [Unknown]
  - Agranulocytosis [Unknown]

NARRATIVE: CASE EVENT DATE: 20201001
